FAERS Safety Report 8891229 (Version 1)
Quarter: 2012Q4

REPORT INFORMATION
  Report Type: 
  Country: US (occurrence: US)
  Receive Date: 20121107
  Receipt Date: 20121107
  Transmission Date: 20130627
  Serious: Yes (Other)
  Sender: FDA-Public Use
  Company Number: US-ROCHE-1140565

PATIENT
  Age: 46 Year
  Sex: Female

DRUGS (1)
  1. HERCEPTIN [Suspect]
     Indication: BREAST CANCER METASTATIC
     Route: 065
     Dates: start: 19990111

REACTIONS (5)
  - VIth nerve paralysis [Unknown]
  - Metastases to liver [Unknown]
  - Nausea [Unknown]
  - Vomiting [Unknown]
  - Diplopia [Unknown]
